FAERS Safety Report 9165056 (Version 1)
Quarter: 2013Q1

REPORT INFORMATION
  Report Type: Spontaneous
  Country: US (occurrence: None)
  Receive Date: 20130313
  Receipt Date: 20130313
  Transmission Date: 20140127
  Serious: Yes (Other)
  Sender: FDA-Public Use
  Company Number: None

PATIENT
  Age: 64 Year
  Sex: Male
  Weight: 97.7 kg

DRUGS (2)
  1. TRAZODONE [Suspect]
     Indication: DEPRESSION
     Route: 048
     Dates: start: 20130221, end: 20130305
  2. TRAZODONE [Suspect]
     Indication: INSOMNIA
     Route: 048
     Dates: start: 20130221, end: 20130305

REACTIONS (1)
  - Treatment failure [None]
